FAERS Safety Report 7311672-6 (Version None)
Quarter: 2011Q1

REPORT INFORMATION
  Report Type: 
  Country: None (occurrence: None)
  Receive Date: 20110224
  Receipt Date: 20110214
  Transmission Date: 20110831
  Serious: Yes (Death)
  Sender: FDA-Public Use
  Company Number: DE-ALEXION PHARMACEUTICALS INC.-A201100208

PATIENT
  Sex: Male

DRUGS (2)
  1. SOLIRIS [Suspect]
     Indication: COLD TYPE HAEMOLYTIC ANAEMIA
     Dosage: 600 MG, UNK
     Route: 042
     Dates: start: 20070101
  2. SOLIRIS [Suspect]
     Dosage: 900 MG, UNK
     Route: 042

REACTIONS (2)
  - SUDDEN CARDIAC DEATH [None]
  - DEATH [None]
